FAERS Safety Report 8329044-4 (Version None)
Quarter: 2012Q2

REPORT INFORMATION
  Report Type: 
  Country: None (occurrence: None)
  Receive Date: 20120502
  Receipt Date: 20120418
  Transmission Date: 20120825
  Serious: Yes (Life-Threatening, Hospitalization, Other)
  Sender: FDA-Public Use
  Company Number: US-MYLANLABS-2009AC000028

PATIENT
  Age: 53 Year
  Sex: Male
  Weight: 107.4 kg

DRUGS (77)
  1. PROPOXYPHENE HYDROCHLORIDE [Concomitant]
  2. ATACAND [Concomitant]
  3. ACETAMINOPHEN W/ PROPOXYPHENE HCL [Concomitant]
  4. LEVAQUIN [Concomitant]
  5. NAPROXEN (ALEVE) [Concomitant]
  6. TOPROL-XL [Concomitant]
  7. NITROGLYCERIN [Concomitant]
  8. VICODIN [Concomitant]
  9. FUROSEMIDE [Concomitant]
  10. MAGNESIUM OXIDE [Concomitant]
  11. AZITHROMYCIN [Concomitant]
  12. NOVOFINE [Concomitant]
  13. LIDODERM [Concomitant]
  14. VIAGRA [Concomitant]
  15. RAMIPRIL [Concomitant]
  16. ALBUTEROL [Concomitant]
  17. REGLAN [Concomitant]
  18. LANTUS [Concomitant]
  19. METOPROLOL TARTRATE [Concomitant]
  20. MELOXICAM [Concomitant]
  21. DOXYCYCLINE HYCLATE [Concomitant]
  22. CARISOPRODOL [Concomitant]
  23. NAPROXEN SODIUM [Concomitant]
  24. NORVASC [Concomitant]
  25. MUCINEX [Concomitant]
  26. PREDNISONE TAB [Concomitant]
  27. NAPROXEN (ALEVE) [Concomitant]
  28. CARVEDILOL [Concomitant]
  29. ISOSORBIDE DINITRATE [Concomitant]
  30. ACETAMINOPHEN [Concomitant]
  31. SPIRONOLACTONE [Concomitant]
  32. STARLIX [Concomitant]
  33. PLAVIX [Concomitant]
  34. MUSE [Concomitant]
  35. PROAIR HFA [Concomitant]
  36. OXYCONTIN [Concomitant]
  37. TRAMADOL HCL [Concomitant]
  38. KAYEXALATE [Concomitant]
  39. METFORMIN HCL [Concomitant]
  40. LOVENOX [Concomitant]
  41. NEXIUM [Concomitant]
  42. DIGOXIN [Suspect]
     Indication: CARDIAC DISORDER
     Route: 048
     Dates: start: 20040816, end: 20080111
  43. NOVOLOG [Concomitant]
  44. JANUVIA [Concomitant]
  45. ALBUTEROL [Concomitant]
  46. LYRICA [Concomitant]
  47. MIRALAX /00754501/ [Concomitant]
  48. POTASSIUM CHLORIDE [Concomitant]
  49. ZOFRAN [Concomitant]
  50. GLUCOVANCE [Concomitant]
  51. POTASSIUM CHLORIDE [Concomitant]
  52. SPIRIVA [Concomitant]
  53. BISULFATE [Concomitant]
  54. DIAZEPAM [Concomitant]
  55. ROCEPHIN [Concomitant]
  56. FEXOFENADINE [Concomitant]
  57. HYDRALAZINE HCL [Concomitant]
  58. HYDROCODONE BITARTRATE [Concomitant]
  59. INSULIN [Concomitant]
  60. VICODIN [Concomitant]
  61. ALTACE [Concomitant]
  62. GLYBURIDE AND METFORMIN HYDROCHLORIDE [Concomitant]
  63. METHYLPREDNISOLONE [Concomitant]
  64. GABAPENTIN [Concomitant]
  65. LACTULOSE [Concomitant]
  66. MEDROL [Concomitant]
  67. ASPIRIN [Concomitant]
  68. CLOPIDOGREL [Concomitant]
  69. ADVAIR DISKUS 100/50 [Concomitant]
  70. KLOR-CON [Concomitant]
  71. SULFAMETHOXAZOLE AND TRIMETHOPRIM [Concomitant]
  72. DICLOFENAC SODIUM [Concomitant]
  73. DIPRIVAN [Concomitant]
  74. AMLODIPINE BESYLATE [Concomitant]
  75. PROTONIX [Concomitant]
  76. DARVOCET [Concomitant]
  77. CRESTOR [Concomitant]

REACTIONS (91)
  - BLOOD CREATININE INCREASED [None]
  - CONGESTIVE CARDIOMYOPATHY [None]
  - CORONARY ARTERY DISEASE [None]
  - HYPERNATRAEMIA [None]
  - BACK PAIN [None]
  - RADICULOPATHY [None]
  - ENDOTRACHEAL INTUBATION [None]
  - HYPERGLYCAEMIA [None]
  - CENTRAL VENOUS CATHETERISATION [None]
  - ECHOCARDIOGRAM ABNORMAL [None]
  - OBESITY [None]
  - OSTEOARTHRITIS [None]
  - HYPERCHOLESTEROLAEMIA [None]
  - RENAL FAILURE [None]
  - OEDEMA PERIPHERAL [None]
  - DIABETES MELLITUS INADEQUATE CONTROL [None]
  - OXYGEN SATURATION DECREASED [None]
  - CONSTIPATION [None]
  - ABDOMINAL DISTENSION [None]
  - PLEURAL EFFUSION [None]
  - LUNG INFILTRATION [None]
  - ADVERSE DRUG REACTION [None]
  - RENAL IMPAIRMENT [None]
  - MYALGIA [None]
  - HYPERKALAEMIA [None]
  - WEIGHT INCREASED [None]
  - RESPIRATORY FAILURE [None]
  - RESPIRATORY ARREST [None]
  - ASTHMA [None]
  - INTERVERTEBRAL DISC SPACE NARROWING [None]
  - CARDIAC FAILURE CONGESTIVE [None]
  - BLOOD UREA INCREASED [None]
  - PULMONARY HYPERTENSION [None]
  - PULMONARY OEDEMA [None]
  - SPINAL COLUMN STENOSIS [None]
  - ENDOSCOPY UPPER GASTROINTESTINAL TRACT [None]
  - ILL-DEFINED DISORDER [None]
  - ABDOMINAL TENDERNESS [None]
  - FATIGUE [None]
  - TROPONIN INCREASED [None]
  - CHEST PAIN [None]
  - ANGINA PECTORIS [None]
  - DYSPNOEA EXERTIONAL [None]
  - ORTHOPNOEA [None]
  - MECHANICAL VENTILATION [None]
  - COUGH [None]
  - SPINAL OSTEOARTHRITIS [None]
  - ASTHENIA [None]
  - ATELECTASIS [None]
  - COMPUTERISED TOMOGRAM ABNORMAL [None]
  - DECREASED APPETITE [None]
  - DIARRHOEA [None]
  - FACET JOINT SYNDROME [None]
  - NAUSEA [None]
  - POOR QUALITY SLEEP [None]
  - INJURY [None]
  - HYPERTENSION [None]
  - DEHYDRATION [None]
  - ABDOMINAL PAIN [None]
  - PYREXIA [None]
  - CARDIOMEGALY [None]
  - ARTHRALGIA [None]
  - ACUTE RESPIRATORY FAILURE [None]
  - CONDITION AGGRAVATED [None]
  - PALPITATIONS [None]
  - PULMONARY CONGESTION [None]
  - EJECTION FRACTION DECREASED [None]
  - CATHETERISATION CARDIAC [None]
  - WHEEZING [None]
  - CHEST X-RAY ABNORMAL [None]
  - BRONCHOSCOPY [None]
  - GASTROENTERITIS [None]
  - GASTROINTESTINAL TUBE INSERTION [None]
  - JUGULAR VEIN DISTENSION [None]
  - LABORATORY TEST ABNORMAL [None]
  - SLEEP APNOEA SYNDROME [None]
  - CARDIOMYOPATHY [None]
  - DYSPNOEA PAROXYSMAL NOCTURNAL [None]
  - BREATH SOUNDS ABNORMAL [None]
  - BRONCHITIS [None]
  - ANAEMIA [None]
  - PAIN IN EXTREMITY [None]
  - MUSCULOSKELETAL PAIN [None]
  - GASTRIC POLYPS [None]
  - ECONOMIC PROBLEM [None]
  - LEFT VENTRICULAR HYPERTROPHY [None]
  - MITRAL VALVE INCOMPETENCE [None]
  - CORONARY ARTERIAL STENT INSERTION [None]
  - GASTROINTESTINAL SOUNDS ABNORMAL [None]
  - INTERMITTENT CLAUDICATION [None]
  - NEUROPATHY PERIPHERAL [None]
